FAERS Safety Report 5339766-5 (Version None)
Quarter: 2007Q2

REPORT INFORMATION
  Report Type: 
  Country: None (occurrence: None)
  Receive Date: 20070531
  Receipt Date: 20070521
  Transmission Date: 20071010
  Serious: Yes (Other)
  Sender: FDA-Public Use
  Company Number: PHFR2007IE01183

PATIENT
  Age: 46 Year
  Sex: Male

DRUGS (4)
  1. CLOZARIL [Suspect]
     Indication: SCHIZOPHRENIA
     Dosage: 175MG DAILY
     Route: 048
     Dates: start: 20061015
  2. CLOZARIL [Suspect]
     Dosage: 175MG/DAY
     Route: 048
     Dates: start: 19601006, end: 20061104
  3. OLANZAPINE [Concomitant]
     Indication: PSYCHOTIC DISORDER
     Dosage: 20MG/DAY
     Route: 048
     Dates: start: 20061015
  4. ESCITALOPRAM OXALATE [Concomitant]
     Indication: AFFECTIVE DISORDER
     Dosage: 20MG/DAY
     Route: 048
     Dates: start: 20061015

REACTIONS (8)
  - BLOOD PROLACTIN INCREASED [None]
  - COLITIS [None]
  - DIARRHOEA [None]
  - EOSINOPHIL COUNT INCREASED [None]
  - MONOCYTE COUNT INCREASED [None]
  - NEUTROPHIL COUNT INCREASED [None]
  - PYREXIA [None]
  - VOMITING [None]
